FAERS Safety Report 20097093 (Version 1)
Quarter: 2021Q4

REPORT INFORMATION
  Report Type: Spontaneous
  Country: FR (occurrence: FR)
  Receive Date: 20211122
  Receipt Date: 20211122
  Transmission Date: 20220303
  Serious: Yes (Other)
  Sender: FDA-Public Use
  Company Number: FR-CISBIO-2021000771

PATIENT
  Age: 67 Year
  Sex: Male
  Weight: 93 kg

DRUGS (3)
  1. TECHNETIUM TC-99M OXIDRONATE [Suspect]
     Active Substance: TECHNETIUM TC-99M OXIDRONATE
     Route: 042
     Dates: start: 20211020, end: 20211020
  2. SODIUM PERTECHNETATE TC 99M [Suspect]
     Active Substance: TECHNETIUM TC-99M SODIUM PERTECHNETATE
     Route: 042
     Dates: start: 20211020, end: 20211020
  3. XARELTO [Concomitant]
     Active Substance: RIVAROXABAN
     Route: 065

REACTIONS (3)
  - Injection site extravasation [Recovered/Resolved]
  - Injection site oedema [Recovering/Resolving]
  - Injection site erythema [Recovered/Resolved]

NARRATIVE: CASE EVENT DATE: 20211020
